FAERS Safety Report 6207251-4 (Version None)
Quarter: 2009Q2

REPORT INFORMATION
  Report Type: 
  Country: None (occurrence: None)
  Receive Date: 20090528
  Receipt Date: 20090223
  Transmission Date: 20091009
  Serious: Yes (Other)
  Sender: FDA-Public Use
  Company Number: JP-PFIZER INC-2009173403

PATIENT
  Age: 83 Year
  Sex: Male

DRUGS (12)
  1. SOLU-MEDROL [Suspect]
     Dosage: UNK
     Route: 042
     Dates: start: 20080807, end: 20080820
  2. SAXIZON [Suspect]
     Dosage: UNK
     Route: 042
     Dates: start: 20080821, end: 20080906
  3. AMARYL [Concomitant]
  4. BLOPRESS [Concomitant]
  5. AMLODIPINE [Concomitant]
  6. ASPIRIN [Concomitant]
  7. ACINON [Concomitant]
  8. URSO 250 [Concomitant]
  9. FINIBAX [Concomitant]
  10. BISOLVON [Concomitant]
  11. MODACIN [Concomitant]
     Indication: PNEUMONIA
  12. MINOCYCLINE HYDROCHLORIDE [Concomitant]
     Indication: PNEUMONIA

REACTIONS (1)
  - HYPERGLYCAEMIA [None]
